FAERS Safety Report 6486566-9 (Version None)
Quarter: 2009Q4

REPORT INFORMATION
  Report Type: 
  Country: None (occurrence: None)
  Receive Date: 20091210
  Receipt Date: 20091201
  Transmission Date: 20100525
  Serious: Yes (Other)
  Sender: FDA-Public Use
  Company Number: PHHY2009CA53079

PATIENT

DRUGS (3)
  1. DIOVAN [Suspect]
     Indication: HYPERTENSION
  2. DIURETICS [Concomitant]
  3. ACE INHIBITOR NOS [Concomitant]

REACTIONS (1)
  - MICROALBUMINURIA [None]
